FAERS Safety Report 17291274 (Version 1)
Quarter: 2020Q1

REPORT INFORMATION
  Report Type: Report from Study
  Country: IE (occurrence: IE)
  Receive Date: 20200121
  Receipt Date: 20200121
  Transmission Date: 20200409
  Serious: Yes (Other)
  Sender: FDA-Public Use
  Company Number: IE-AMGEN-IRLSL2020008661

PATIENT
  Age: 79 Year
  Sex: Female

DRUGS (8)
  1. LYRICA [Concomitant]
     Active Substance: PREGABALIN
     Dosage: 100 MILLIGRAM, QD
     Route: 050
  2. STILNOCT [Concomitant]
     Active Substance: ZOLPIDEM TARTRATE
     Dosage: 5 MILLIGRAM, QD
     Route: 050
  3. BISOPROLOL [Concomitant]
     Active Substance: BISOPROLOL
     Dosage: 1.25 MILLIGRAM, QD
     Route: 050
  4. NEXIUM I.V. [Concomitant]
     Active Substance: ESOMEPRAZOLE SODIUM
     Dosage: 40 MILLIGRAM, QD
     Route: 050
  5. TAMOXIFEN [Concomitant]
     Active Substance: TAMOXIFEN
     Dosage: 20 MILLIGRAM, QD
     Route: 050
  6. LEXAPRO [Concomitant]
     Active Substance: ESCITALOPRAM OXALATE
     Dosage: 10 MILLIGRAM
     Route: 050
  7. NEULASTA [Suspect]
     Active Substance: PEGFILGRASTIM
     Indication: PRODUCT USED FOR UNKNOWN INDICATION
     Dosage: 6 MILLIGRAM, AS PER PRESCRIPTION
     Route: 058
  8. ELTROXIN [Concomitant]
     Active Substance: LEVOTHYROXINE
     Dosage: 125 MICROGRAM, QD
     Route: 050

REACTIONS (2)
  - Kidney infection [Recovering/Resolving]
  - Heart rate irregular [Recovered/Resolved]
